FAERS Safety Report 13157162 (Version 1)
Quarter: 2017Q1

REPORT INFORMATION
  Report Type: Spontaneous
  Country: US (occurrence: US)
  Receive Date: 20170127
  Receipt Date: 20170127
  Transmission Date: 20170428
  Serious: No
  Sender: FDA-Public Use
  Company Number: US-LUPIN PHARMACEUTICALS INC.-E2B_00004897

PATIENT
  Age: 8 Month
  Sex: Male

DRUGS (1)
  1. CEFPROZIL FOR ORAL SUSPENSION USP 250 MG/5 ML [Suspect]
     Active Substance: CEFPROZIL
     Indication: EAR INFECTION
     Route: 048
     Dates: start: 20160205

REACTIONS (1)
  - Vomiting [Recovered/Resolved]

NARRATIVE: CASE EVENT DATE: 20160211
